FAERS Safety Report 22250560 (Version 3)
Quarter: 2023Q2

REPORT INFORMATION
  Report Type: Report from Study
  Country: CN (occurrence: CN)
  Receive Date: 20230425
  Receipt Date: 20230517
  Transmission Date: 20230722
  Serious: Yes (Hospitalization)
  Sender: FDA-Public Use
  Company Number: CN-PFIZER INC-PV202300060178

PATIENT
  Age: 13 Year
  Sex: Male
  Weight: 49 kg

DRUGS (7)
  1. TOFACITINIB CITRATE [Suspect]
     Active Substance: TOFACITINIB CITRATE
     Indication: Still^s disease
     Dosage: 5 MG, 2X/DAY
     Route: 048
     Dates: start: 20230228, end: 20230329
  2. PREDNISONE [Concomitant]
     Active Substance: PREDNISONE
     Indication: Antiinflammatory therapy
     Dosage: 5 MG, 1X/DAY
     Route: 048
     Dates: start: 20230214
  3. BICYCLOL [Concomitant]
     Active Substance: BICYCLOL
     Indication: Prophylaxis
     Dosage: 25 MG, 3X/DAY
     Route: 048
     Dates: start: 20230215
  4. IBUPROFEN [Concomitant]
     Active Substance: IBUPROFEN
     Indication: Antiinflammatory therapy
     Dosage: 15 ML, 3X/DAY, SUSPENSION
     Route: 048
     Dates: start: 20230130, end: 20230215
  5. CETIRIZINE HYDROCHLORIDE [Concomitant]
     Active Substance: CETIRIZINE HYDROCHLORIDE
     Indication: Hypersensitivity
     Dosage: 10 MG, 1X/DAY
     Route: 048
     Dates: start: 20230130, end: 20230215
  6. ORNITHINE ASPARTATE [Concomitant]
     Active Substance: ORNITHINE ASPARTATE
     Indication: Prophylaxis
     Dosage: 3 G, 2X/DAY
     Route: 048
     Dates: start: 20200121
  7. DICLOFENAC SODIUM [Concomitant]
     Active Substance: DICLOFENAC SODIUM
     Indication: Antiinflammatory therapy
     Dosage: 25 MG, 3X/DAY, ENTERIC COATED
     Route: 048
     Dates: start: 20230315

REACTIONS (1)
  - Histiocytic necrotising lymphadenitis [Recovered/Resolved]

NARRATIVE: CASE EVENT DATE: 20230329
